FAERS Safety Report 5238659-1 (Version None)
Quarter: 2007Q1

REPORT INFORMATION
  Report Type: 
  Country: None (occurrence: None)
  Receive Date: 20070215
  Receipt Date: 20070209
  Transmission Date: 20070707
  Serious: Yes (Death, Disabling, Other)
  Sender: FDA-Public Use
  Company Number: PHBS2006IT19579

PATIENT
  Age: 52 Year
  Sex: Female

DRUGS (5)
  1. ZOMETA [Suspect]
     Indication: METASTASES TO BONE
     Dosage: 4 MG, MONTHLY
     Route: 042
     Dates: start: 20040517, end: 20050101
  2. FEMARA [Concomitant]
     Indication: THROMBOCYTOPENIA
  3. CHEMOTHERAPEUTICS,OTHER [Concomitant]
     Dates: start: 20040517
  4. TAXOL [Concomitant]
     Dosage: WEEKLY
     Dates: start: 20040517
  5. HORMONES [Concomitant]

REACTIONS (16)
  - BONE DISORDER [None]
  - BONE OPERATION [None]
  - DEATH [None]
  - DISEASE PROGRESSION [None]
  - GINGIVITIS [None]
  - HYPOAESTHESIA ORAL [None]
  - IMPAIRED HEALING [None]
  - LUNG DISORDER [None]
  - OSTEITIS [None]
  - OSTEONECROSIS [None]
  - POLYPECTOMY [None]
  - SPINAL FRACTURE [None]
  - TOOTH ABSCESS [None]
  - TOOTH EXTRACTION [None]
  - TOOTH LOSS [None]
  - TOOTHACHE [None]
